FAERS Safety Report 10970973 (Version 1)
Quarter: 2015Q1

REPORT INFORMATION
  Report Type: Spontaneous
  Country: US (occurrence: US)
  Receive Date: 20150331
  Receipt Date: 20150331
  Transmission Date: 20150721
  Serious: No
  Sender: FDA-Public Use
  Company Number: US-PFIZER INC-2015107889

PATIENT
  Age: 46 Year
  Sex: Female
  Weight: 52 kg

DRUGS (3)
  1. CYTOMEL [Suspect]
     Active Substance: LIOTHYRONINE SODIUM
     Dosage: UNK, 4X/DAY  (25 ?G TABLETS BY BREAKING INTO PIECES)
     Route: 048
  2. CYTOMEL [Suspect]
     Active Substance: LIOTHYRONINE SODIUM
     Dosage: 25 ?G, DAILY (25 ?G TABLETS HALF IN MORNING AND AFTERNOON)
     Route: 048
     Dates: start: 201409
  3. LEVOXYL [Concomitant]
     Active Substance: LEVOTHYROXINE SODIUM
     Dosage: UNK

REACTIONS (1)
  - Fatigue [Unknown]
